FAERS Safety Report 7954963-8 (Version None)
Quarter: 2011Q4

REPORT INFORMATION
  Report Type: 
  Country: None (occurrence: None)
  Receive Date: 20111202
  Receipt Date: 20111124
  Transmission Date: 20120403
  Serious: Yes (Other)
  Sender: FDA-Public Use
  Company Number: AT-BAYER-2011-113638

PATIENT
  Age: 36 Year
  Sex: Female

DRUGS (1)
  1. MIRENA [Suspect]
     Dosage: 20 MCG/24HR, CONT
     Route: 015
     Dates: start: 20050101, end: 20110201

REACTIONS (4)
  - DEVICE DIFFICULT TO USE [None]
  - PAIN IN EXTREMITY [None]
  - RAYNAUD'S PHENOMENON [None]
  - POOR PERIPHERAL CIRCULATION [None]
